FAERS Safety Report 12673768 (Version 1)
Quarter: 2016Q3

REPORT INFORMATION
  Report Type: Spontaneous
  Country: FR (occurrence: FR)
  Receive Date: 20160822
  Receipt Date: 20160822
  Transmission Date: 20161109
  Serious: Yes (Hospitalization)
  Sender: FDA-Public Use
  Company Number: FR-BAYER-2016-157152

PATIENT
  Age: 71 Year
  Sex: Female

DRUGS (4)
  1. DAFLON [DIOSMIN] [Concomitant]
     Route: 048
  2. STIVARGA [Suspect]
     Active Substance: REGORAFENIB
     Dosage: UNK
     Route: 048
     Dates: start: 20160627, end: 20160715
  3. SPIRONOLACTONE. [Concomitant]
     Active Substance: SPIRONOLACTONE
     Route: 048
  4. EZETROL [Concomitant]
     Active Substance: EZETIMIBE
     Route: 048

REACTIONS (4)
  - Lipase urine increased [Recovered/Resolved]
  - Hyperlipasaemia [Recovered/Resolved]
  - Immune reconstitution inflammatory syndrome [Recovered/Resolved]
  - Thrombocytopenia [Recovered/Resolved]

NARRATIVE: CASE EVENT DATE: 20160714
